FAERS Safety Report 21765659 (Version 1)
Quarter: 2022Q4

REPORT INFORMATION
  Report Type: Spontaneous
  Country: US (occurrence: None)
  Receive Date: 20221221
  Receipt Date: 20221221
  Transmission Date: 20230112
  Serious: Yes (Other)
  Sender: FDA-Public Use
  Company Number: None

PATIENT
  Age: 62 Year
  Sex: Female
  Weight: 76.66 kg

DRUGS (4)
  1. ESCITALOPRAM [Suspect]
     Active Substance: ESCITALOPRAM OXALATE
     Indication: Depression
     Dosage: FREQUENCY : DAILY;?
     Route: 048
     Dates: start: 2005, end: 2005
  2. ESCITALOPRAM [Suspect]
     Active Substance: ESCITALOPRAM OXALATE
     Indication: Anxiety
  3. ESZOPICLONE [Suspect]
     Active Substance: ESZOPICLONE
     Indication: Post-traumatic stress disorder
     Dosage: OTHER FREQUENCY : HS;?
     Route: 048
     Dates: start: 2006, end: 2006
  4. ESZOPICLONE [Suspect]
     Active Substance: ESZOPICLONE
     Indication: Insomnia

REACTIONS (7)
  - Headache [None]
  - Fatigue [None]
  - Lethargy [None]
  - Nausea [None]
  - Migraine [None]
  - Gastrointestinal disorder [None]
  - Product substitution issue [None]
